FAERS Safety Report 17590870 (Version 10)
Quarter: 2023Q1

REPORT INFORMATION
  Report Type: Report from Study
  Country: FR (occurrence: None)
  Receive Date: 20200327
  Receipt Date: 20230224
  Transmission Date: 20230417
  Serious: Yes (Hospitalization)
  Sender: FDA-Public Use
  Company Number: FR-ROCHE-2569561

PATIENT
  Age: 50 Year
  Sex: Female
  Weight: 57 kg

DRUGS (18)
  1. ATEZOLIZUMAB [Suspect]
     Active Substance: ATEZOLIZUMAB
     Indication: Triple negative breast cancer
     Dosage: DATE OF MOST RECENT DOSE OF ATEZOLIZUMAB (1200 MG) PRIOR TO AE ONSET ON 16/JAN/2020
     Route: 041
     Dates: start: 20190130
  2. LADIRATUZUMAB VEDOTIN [Suspect]
     Active Substance: LADIRATUZUMAB VEDOTIN
     Indication: Triple negative breast cancer
     Dosage: DATE OF MOST RECENT DOSE OF LADIRATUZUMAB VEDOTIN (115 MG) PRIOR TO AE ONSET: 16/JAN/2020
     Route: 042
     Dates: start: 20190130
  3. EFFEXOR [Concomitant]
     Active Substance: VENLAFAXINE HYDROCHLORIDE
     Indication: Depression
     Route: 048
     Dates: start: 201809
  4. DECAPEPTYL [Concomitant]
     Indication: Contraception
     Route: 030
     Dates: start: 20190130
  5. POLYETHYLENE GLYCOL 4000 [Concomitant]
     Active Substance: POLYETHYLENE GLYCOL 4000
     Indication: Constipation
     Route: 048
     Dates: start: 20190313
  6. LEVOTHYROXINE [Concomitant]
     Active Substance: LEVOTHYROXINE
     Indication: Hypothyroidism
     Route: 048
     Dates: start: 20191205
  7. LAMALINE [Concomitant]
     Indication: Post lumbar puncture syndrome
     Dosage: 1 CAP
     Route: 048
     Dates: start: 20200305
  8. PRIMPERAN [Concomitant]
     Active Substance: METOCLOPRAMIDE HYDROCHLORIDE
     Indication: Vomiting
     Route: 048
     Dates: start: 20200305
  9. PRIMPERAN [Concomitant]
     Active Substance: METOCLOPRAMIDE HYDROCHLORIDE
     Dates: start: 20200301, end: 20200302
  10. CAFFEINE [Concomitant]
     Active Substance: CAFFEINE
     Indication: Post lumbar puncture syndrome
     Route: 042
     Dates: start: 20200302, end: 20200303
  11. PERFALGAN [Concomitant]
     Active Substance: ACETAMINOPHEN
     Indication: Post lumbar puncture syndrome
     Route: 042
     Dates: start: 20200301, end: 20200302
  12. PANTOPRAZOLE [Concomitant]
     Active Substance: PANTOPRAZOLE
     Indication: Gastrointestinal disorder prophylaxis
     Dates: start: 20200301, end: 20200302
  13. VOLUVEN [Concomitant]
     Active Substance: HYDROXYETHYL STARCH 130/0.4
     Indication: Post lumbar puncture syndrome
     Route: 008
     Dates: start: 20200303, end: 20200303
  14. KETOPROFEN [Concomitant]
     Active Substance: KETOPROFEN
     Indication: Post lumbar puncture syndrome
     Route: 042
     Dates: start: 20200301, end: 20200302
  15. CAPECITABINE [Concomitant]
     Active Substance: CAPECITABINE
     Dates: start: 20220207
  16. SACITUZUMAB GOVITECAN [Concomitant]
     Active Substance: SACITUZUMAB GOVITECAN
  17. PACLITAXEL [Concomitant]
     Active Substance: PACLITAXEL
  18. AVASTIN [Concomitant]
     Active Substance: BEVACIZUMAB

REACTIONS (1)
  - Chronic inflammatory demyelinating polyradiculoneuropathy [Not Recovered/Not Resolved]

NARRATIVE: CASE EVENT DATE: 20200116
